FAERS Safety Report 9698869 (Version 1)
Quarter: 2013Q4

REPORT INFORMATION
  Report Type: Spontaneous
  Country: US (occurrence: US)
  Receive Date: 20131120
  Receipt Date: 20131120
  Transmission Date: 20140711
  Serious: No
  Sender: FDA-Public Use
  Company Number: US-TARO-2013P1009892

PATIENT
  Age: 9 Year
  Sex: Female

DRUGS (2)
  1. TRIAMCINOLONE ACETONIDE DENTAL PASTE USP 0.1% [Suspect]
     Indication: GINGIVAL PAIN
     Route: 061
     Dates: start: 201305, end: 2013
  2. TRIAMCINOLONE ACETONIDE DENTAL PASTE USP 0.1% [Suspect]
     Route: 061
     Dates: start: 201305, end: 2013

REACTIONS (6)
  - Gingival bleeding [Recovered/Resolved]
  - Headache [Recovered/Resolved]
  - Rash erythematous [Recovered/Resolved]
  - Nausea [Recovered/Resolved]
  - Vomiting [Recovered/Resolved]
  - Hypersensitivity [Recovered/Resolved]
